FAERS Safety Report 4398335-4 (Version None)
Quarter: 2004Q3

REPORT INFORMATION
  Report Type: 
  Country: None (occurrence: None)
  Receive Date: 20040713
  Receipt Date: 20040628
  Transmission Date: 20050211
  Serious: Yes (Hospitalization)
  Sender: FDA-Public Use
  Company Number: DSA_24610_2004

PATIENT
  Age: 71 Year
  Sex: Male

DRUGS (6)
  1. ENALAPRIL MALEATE [Suspect]
     Indication: HYPERTENSION
     Dosage: 10 MG Q DAY PO
     Route: 048
  2. CANDESARTAN CILEXETIL [Suspect]
     Indication: HYPERTENSION
     Dosage: VAR Q DAY PO
     Route: 048
  3. NIFEDIPINE [Concomitant]
  4. FUROSEMIDE [Concomitant]
  5. ALFACALCIDOL [Concomitant]
  6. D-CHLORPHENIRAMINE MALEATE [Concomitant]

REACTIONS (4)
  - ANGIONEUROTIC OEDEMA [None]
  - DIALYSIS [None]
  - INJECTION SITE REACTION [None]
  - URTICARIA [None]
